FAERS Safety Report 16049120 (Version 5)
Quarter: 2019Q3

REPORT INFORMATION
  Report Type: Spontaneous
  Country: US (occurrence: US)
  Receive Date: 20190307
  Receipt Date: 20190930
  Transmission Date: 20191004
  Serious: Yes (Hospitalization, Other)
  Sender: FDA-Public Use
  Company Number: US-ACTELION-A-NJ2019-187118

PATIENT
  Sex: Female

DRUGS (17)
  1. CLARITIN [Concomitant]
     Active Substance: LORATADINE
     Dosage: 10 MG
     Route: 048
  2. OXYGEN. [Concomitant]
     Active Substance: OXYGEN
  3. TUMS SMOOTHIES [Concomitant]
     Active Substance: CALCIUM CARBONATE
     Dosage: 750 MG
     Route: 048
  4. SOTALOL HCL [Concomitant]
     Active Substance: SOTALOL
     Dosage: 120 MG
     Route: 048
  5. LEXAPRO [Concomitant]
     Active Substance: ESCITALOPRAM OXALATE
     Dosage: 10 MG
     Route: 048
  6. AFRIN [Concomitant]
     Active Substance: OXYMETAZOLINE
  7. MUCINEX [Concomitant]
     Active Substance: GUAIFENESIN
     Dosage: 600 MG
  8. FLUTICASONE. [Concomitant]
     Active Substance: FLUTICASONE
  9. ADVAIR HFA [Concomitant]
     Active Substance: FLUTICASONE PROPIONATE\SALMETEROL XINAFOATE
  10. VITAMIN D [Concomitant]
     Active Substance: VITAMIN D NOS
  11. LUTEIN [Concomitant]
     Active Substance: LUTEIN
  12. PREDNISONE. [Concomitant]
     Active Substance: PREDNISONE
     Dosage: 20 MG
     Route: 048
  13. TRACLEER [Suspect]
     Active Substance: BOSENTAN
     Indication: PULMONARY ARTERIAL HYPERTENSION
     Dosage: 125 MG, BID
     Route: 048
  14. COUMADIN [Concomitant]
     Active Substance: WARFARIN SODIUM
  15. VENTOLIN HFA [Concomitant]
     Active Substance: ALBUTEROL SULFATE
  16. DIGOX [Concomitant]
     Active Substance: DIGOXIN
     Dosage: 250 MCG
     Route: 048
  17. SIMVASTATIN. [Concomitant]
     Active Substance: SIMVASTATIN
     Dosage: 40 MG
     Route: 048

REACTIONS (8)
  - Monoplegia [Unknown]
  - Fall [Unknown]
  - Central nervous system lesion [Unknown]
  - Transient ischaemic attack [Unknown]
  - Muscular weakness [Unknown]
  - Multiple fractures [Unknown]
  - Loss of personal independence in daily activities [Unknown]
  - Cerebrovascular accident [Unknown]

NARRATIVE: CASE EVENT DATE: 2019
